FAERS Safety Report 11716903 (Version 2)
Quarter: 2015Q4

REPORT INFORMATION
  Report Type: Spontaneous
  Country: JP (occurrence: JP)
  Receive Date: 20151109
  Receipt Date: 20151125
  Transmission Date: 20160304
  Serious: Yes (Other)
  Sender: FDA-Public Use
  Company Number: JP-009507513-1511JPN004546

PATIENT
  Age: 65 Year
  Sex: Male

DRUGS (2)
  1. VELCADE [Suspect]
     Active Substance: BORTEZOMIB
     Indication: PLASMA CELL MYELOMA
     Dosage: DAILY DOSE UNKNOWN
     Route: 051
  2. DEXAMETHASONE SODIUM PHOSPHATE. [Suspect]
     Active Substance: DEXAMETHASONE SODIUM PHOSPHATE
     Indication: PLASMA CELL MYELOMA
     Dosage: DAILY DOSE UNKNOWN
     Route: 065

REACTIONS (3)
  - Neutrophil count decreased [Unknown]
  - Cerebral haemorrhage [Recovering/Resolving]
  - White blood cell count increased [Unknown]
